FAERS Safety Report 19499694 (Version 3)
Quarter: 2021Q3

REPORT INFORMATION
  Report Type: Report from Study
  Country: BR (occurrence: BR)
  Receive Date: 20210706
  Receipt Date: 20210909
  Transmission Date: 20211014
  Serious: Yes (Death, Hospitalization, Other)
  Sender: FDA-Public Use
  Company Number: BR-PFIZER INC-2021829965

PATIENT
  Age: 38 Year
  Sex: Male
  Weight: 95 kg

DRUGS (6)
  1. BRAFTOVI [Suspect]
     Active Substance: ENCORAFENIB
     Dosage: 300 MG, PER DAY
     Route: 065
     Dates: start: 20210611, end: 20210613
  2. BRAFTOVI [Suspect]
     Active Substance: ENCORAFENIB
     Indication: COLORECTAL CANCER
     Dosage: 300 MG, PER DAY
     Route: 048
     Dates: start: 20210506, end: 20210608
  3. DEXAMETHASONE. [Concomitant]
     Active Substance: DEXAMETHASONE
     Indication: CEREBRAL OEDEMA MANAGEMENT
     Dosage: 4 MG, QID (4/DAY)
     Route: 041
     Dates: start: 20210722, end: 20210805
  4. QUETIAPINE. [Concomitant]
     Active Substance: QUETIAPINE
     Indication: DELIRIUM
     Dosage: 25 MG, BID (2/DAY)
     Route: 048
     Dates: start: 20210728, end: 20210805
  5. CETUXIMAB. [Concomitant]
     Active Substance: CETUXIMAB
     Indication: COLORECTAL CANCER
     Dosage: UNK
     Dates: start: 20210506, end: 20210726
  6. BRAFTOVI [Suspect]
     Active Substance: ENCORAFENIB
     Dosage: 225 MG, PER DAY
     Route: 065
     Dates: start: 20210614, end: 20210726

REACTIONS (5)
  - Neoplasm progression [Fatal]
  - Hyperkalaemia [Recovered/Resolved]
  - Brain oedema [Fatal]
  - Confusional state [Unknown]
  - Spinal pain [Recovered/Resolved]

NARRATIVE: CASE EVENT DATE: 20210526
